FAERS Safety Report 13182290 (Version 8)
Quarter: 2017Q3

REPORT INFORMATION
  Report Type: Report from Study
  Country: MX (occurrence: MX)
  Receive Date: 20170203
  Receipt Date: 20170721
  Transmission Date: 20171127
  Serious: Yes (Other)
  Sender: FDA-Public Use
  Company Number: PHHY2017MX015368

PATIENT
  Sex: Female

DRUGS (6)
  1. FLUOXETINE [Concomitant]
     Active Substance: FLUOXETINE HYDROCHLORIDE
     Indication: PRODUCT USED FOR UNKNOWN INDICATION
     Route: 065
  2. CLONAZEPAM. [Concomitant]
     Active Substance: CLONAZEPAM
     Indication: PRODUCT USED FOR UNKNOWN INDICATION
     Route: 065
  3. STALEVO [Suspect]
     Active Substance: CARBIDOPA\ENTACAPONE\LEVODOPA
     Indication: PARKINSON^S DISEASE
     Dosage: 1 DF (CARBIDOPA 25 MG/ ENTACAPONE 200 MG/ LEVODOPA 100 MG), QD
     Route: 065
  4. LEVODOPA [Concomitant]
     Active Substance: LEVODOPA
     Indication: PRODUCT USED FOR UNKNOWN INDICATION
  5. PRAMIPEXOLE. [Concomitant]
     Active Substance: PRAMIPEXOLE
     Indication: PRODUCT USED FOR UNKNOWN INDICATION
     Route: 065
  6. STALEVO [Suspect]
     Active Substance: CARBIDOPA\ENTACAPONE\LEVODOPA
     Dosage: 1 DF (CARBIDOPA 25 MG/ ENTACAPONE 200 MG/ LEVODOPA 100 MG), QD
     Route: 065

REACTIONS (18)
  - Parkinson^s disease [Unknown]
  - Pain [Unknown]
  - Dementia [Unknown]
  - Fall [Unknown]
  - Pain in extremity [Unknown]
  - Hallucination [Unknown]
  - Malaise [Unknown]
  - Weight decreased [Unknown]
  - Hallucination, visual [Recovering/Resolving]
  - Confusional state [Unknown]
  - Mobility decreased [Unknown]
  - Irritability [Unknown]
  - Limb injury [Unknown]
  - Insomnia [Recovering/Resolving]
  - Delirium [Unknown]
  - Gait disturbance [Unknown]
  - Abnormal behaviour [Unknown]
  - Muscular weakness [Unknown]
